FAERS Safety Report 12385984 (Version 1)
Quarter: 2016Q2

REPORT INFORMATION
  Report Type: Spontaneous
  Country: US (occurrence: US)
  Receive Date: 20160519
  Receipt Date: 20160519
  Transmission Date: 20160815
  Serious: No
  Sender: FDA-Public Use
  Company Number: US-ENDO PHARMACEUTICALS INC.-2016-000527

PATIENT
  Age: 82 Year
  Sex: Female
  Weight: 56.75 kg

DRUGS (1)
  1. LORAZEPAM TABLETS 0.5MG [Suspect]
     Active Substance: LORAZEPAM
     Indication: SLEEP DISORDER
     Route: 048
     Dates: start: 2011

REACTIONS (3)
  - Off label use [Unknown]
  - Hallucination, visual [Recovered/Resolved]
  - Somnolence [Not Recovered/Not Resolved]

NARRATIVE: CASE EVENT DATE: 2011
